FAERS Safety Report 16542042 (Version 1)
Quarter: 2019Q3

REPORT INFORMATION
  Report Type: Spontaneous
  Country: DE (occurrence: DE)
  Receive Date: 20190708
  Receipt Date: 20190708
  Transmission Date: 20191004
  Serious: Yes (Life-Threatening, Hospitalization, Other)
  Sender: FDA-Public Use
  Company Number: DE-JNJFOC-20190700541

PATIENT
  Age: 81 Year
  Sex: Male

DRUGS (1)
  1. XARELTO [Suspect]
     Active Substance: RIVAROXABAN
     Indication: ATRIAL FIBRILLATION
     Route: 048

REACTIONS (7)
  - Fall [Unknown]
  - Subdural haematoma [Unknown]
  - Fall [Unknown]
  - Ear haemorrhage [Unknown]
  - Traumatic intracranial haemorrhage [Unknown]
  - Subarachnoid haemorrhage [Unknown]
  - Skull fractured base [Unknown]

NARRATIVE: CASE EVENT DATE: 20190222
